FAERS Safety Report 8460167-5 (Version None)
Quarter: 2012Q2

REPORT INFORMATION
  Report Type: 
  Country: None (occurrence: None)
  Receive Date: 20120622
  Receipt Date: 20120620
  Transmission Date: 20120825
  Serious: Yes (Death, Hospitalization)
  Sender: FDA-Public Use
  Company Number: AU-B.I. PHARMACEUTICALS,INC./RIDGEFIELD-2012-AU-01033AU

PATIENT
  Sex: Male
  Weight: 120 kg

DRUGS (11)
  1. DIGOXIN [Concomitant]
  2. SLOW-K [Concomitant]
  3. VIT D3 [Concomitant]
     Dosage: 1666.6667 U
  4. SERTRALINE HYDROCHLORIDE [Concomitant]
  5. FUROSEMIDE [Concomitant]
  6. MIXTARD HUMAN 70/30 [Concomitant]
     Dosage: 30/70
  7. ACETAMINOPHEN [Concomitant]
     Dosage: 3 G
  8. SIMVASTATIN [Concomitant]
  9. PRADAXA [Suspect]
     Indication: ATRIAL FIBRILLATION
     Dosage: 110 MG
     Dates: start: 20110920, end: 20120410
  10. SEROQUEL [Concomitant]
  11. METOPROLOL [Concomitant]
     Dosage: 50 MG

REACTIONS (4)
  - HAEMOGLOBIN DECREASED [None]
  - HYPOVOLAEMIA [None]
  - DEATH [None]
  - RENAL FAILURE ACUTE [None]
